FAERS Safety Report 13791635 (Version 1)
Quarter: 2017Q3

REPORT INFORMATION
  Report Type: Spontaneous
  Country: CN (occurrence: CN)
  Receive Date: 20170725
  Receipt Date: 20170725
  Transmission Date: 20171127
  Serious: Yes (Other)
  Sender: FDA-Public Use
  Company Number: CN-MERCK KGAA-2023763

PATIENT
  Age: 61 Year
  Sex: Female

DRUGS (1)
  1. NOVOTHYROX [Suspect]
     Active Substance: LEVOTHYROXINE SODIUM
     Indication: POST PROCEDURAL HYPOTHYROIDISM

REACTIONS (7)
  - Myocardial infarction [Not Recovered/Not Resolved]
  - Fatigue [Unknown]
  - Myocardial ischaemia [Unknown]
  - Tachycardia [Unknown]
  - Mood swings [Unknown]
  - Hypoaesthesia [Unknown]
  - Frequent bowel movements [Unknown]
